FAERS Safety Report 20838089 (Version 5)
Quarter: 2022Q4

REPORT INFORMATION
  Report Type: Spontaneous
  Country: US (occurrence: US)
  Receive Date: 20220517
  Receipt Date: 20221228
  Transmission Date: 20230112
  Serious: No
  Sender: FDA-Public Use
  Company Number: US-BRISTOL-MYERS SQUIBB COMPANY-2022-023995

PATIENT
  Age: 49 Year
  Sex: Female

DRUGS (2)
  1. SPRYCEL [Suspect]
     Active Substance: DASATINIB
     Indication: Chronic myeloid leukaemia
     Route: 048
     Dates: start: 20161221
  2. SPRYCEL [Suspect]
     Active Substance: DASATINIB
     Indication: Thrombocytopenia
     Route: 048
     Dates: start: 20161221

REACTIONS (2)
  - Headache [Unknown]
  - Dyspepsia [Unknown]
